FAERS Safety Report 22290825 (Version 1)
Quarter: 2023Q2

REPORT INFORMATION
  Report Type: Spontaneous
  Country: US (occurrence: US)
  Receive Date: 20230506
  Receipt Date: 20230506
  Transmission Date: 20230721
  Serious: No
  Sender: FDA-Public Use
  Company Number: US-ABBVIE-4754591

PATIENT
  Sex: Male

DRUGS (1)
  1. IMBRUVICA [Suspect]
     Active Substance: IBRUTINIB
     Indication: Product used for unknown indication
     Dosage: 420 MILLIGRAM?THE ONSET DATES FOR EVENT ARTHRITIS FLARE UP, PINCHED NERVE AND PAIN WAS 2023.?THE ...
     Route: 048
     Dates: start: 20230209

REACTIONS (3)
  - Arthritis [Unknown]
  - Nerve compression [Unknown]
  - Pain [Unknown]
